FAERS Safety Report 6901003-5 (Version None)
Quarter: 2010Q3

REPORT INFORMATION
  Report Type: 
  Country: None (occurrence: None)
  Receive Date: 20100803
  Receipt Date: 20100730
  Transmission Date: 20110219
  Serious: Yes (Other)
  Sender: FDA-Public Use
  Company Number: D0068465A

PATIENT
  Age: 35 Year
  Sex: Female
  Weight: 70 kg

DRUGS (2)
  1. ARIXTRA [Suspect]
     Indication: THROMBOSIS PROPHYLAXIS
     Route: 065
     Dates: start: 20080207, end: 20080404
  2. ENOXAPARIN SODIUM [Concomitant]
     Dosage: 40MG PER DAY
     Route: 065
     Dates: start: 20070829, end: 20080207

REACTIONS (4)
  - ABDOMINAL WALL HAEMATOMA [None]
  - DRUG EXPOSURE DURING PREGNANCY [None]
  - LIVE BIRTH [None]
  - VAGINAL HAEMORRHAGE [None]
